FAERS Safety Report 10923021 (Version 1)
Quarter: 2015Q1

REPORT INFORMATION
  Report Type: Spontaneous
  Country: US (occurrence: US)
  Receive Date: 20150317
  Receipt Date: 20150317
  Transmission Date: 20150721
  Serious: Yes (Hospitalization)
  Sender: FDA-Public Use
  Company Number: US-GILEAD-2015-0142379

PATIENT
  Age: 57 Year
  Sex: Female

DRUGS (4)
  1. DARUNAVIR [Suspect]
     Active Substance: DARUNAVIR
     Indication: HIV INFECTION
     Route: 065
  2. EMTRICITABINE [Suspect]
     Active Substance: EMTRICITABINE
     Indication: HIV INFECTION
     Route: 065
  3. VIREAD [Suspect]
     Active Substance: TENOFOVIR DISOPROXIL FUMARATE
     Indication: HIV INFECTION
     Route: 065
  4. RITONAVIR. [Suspect]
     Active Substance: RITONAVIR
     Indication: HIV INFECTION
     Route: 065

REACTIONS (1)
  - Lipodystrophy acquired [Recovering/Resolving]
